FAERS Safety Report 12540635 (Version 2)
Quarter: 2016Q4

REPORT INFORMATION
  Report Type: Spontaneous
  Country: US (occurrence: US)
  Receive Date: 20160708
  Receipt Date: 20161012
  Transmission Date: 20170207
  Serious: No
  Sender: FDA-Public Use
  Company Number: US-TEVA-650992USA

PATIENT
  Sex: Female

DRUGS (4)
  1. ZECUITY [Suspect]
     Active Substance: SUMATRIPTAN SUCCINATE
     Indication: MIGRAINE
     Route: 062
  2. ALEVE [Concomitant]
     Active Substance: NAPROXEN SODIUM
  3. GILENYA [Concomitant]
     Active Substance: FINGOLIMOD HYDROCHLORIDE
  4. BRINTELLIX [Concomitant]
     Active Substance: VORTIOXETINE HYDROBROMIDE

REACTIONS (9)
  - Application site paraesthesia [Recovered/Resolved]
  - Product leakage [Unknown]
  - Product adhesion issue [Unknown]
  - Application site irritation [Recovered/Resolved]
  - Application site discolouration [Recovered/Resolved]
  - Application site pain [Recovered/Resolved]
  - Circumstance or information capable of leading to medication error [Unknown]
  - Application site erythema [Recovered/Resolved]
  - Drug effect incomplete [Unknown]
